FAERS Safety Report 14088362 (Version 5)
Quarter: 2019Q2

REPORT INFORMATION
  Report Type: Report from Study
  Country: US (occurrence: US)
  Receive Date: 20171013
  Receipt Date: 20190418
  Transmission Date: 20190711
  Serious: Yes (Other)
  Sender: FDA-Public Use
  Company Number: US-ACTELION-A-US2017-160747

PATIENT
  Age: 58 Year
  Sex: Male
  Weight: 52.15 kg

DRUGS (4)
  1. WARFARIN [Concomitant]
     Active Substance: WARFARIN
  2. OPSUMIT [Suspect]
     Active Substance: MACITENTAN
     Indication: PULMONARY ARTERIAL HYPERTENSION
     Dosage: 10 MG, QD
     Route: 048
  3. ADCIRCA [Concomitant]
     Active Substance: TADALAFIL
  4. TYVASO [Concomitant]
     Active Substance: TREPROSTINIL

REACTIONS (11)
  - Cancer surgery [Unknown]
  - Dyspnoea [Unknown]
  - Weight decreased [Unknown]
  - Dizziness postural [Unknown]
  - Syncope [Unknown]
  - Impaired healing [Unknown]
  - Dizziness [Unknown]
  - Squamous cell carcinoma of head and neck [Unknown]
  - Fall [Unknown]
  - Dehydration [Unknown]
  - Dysphagia [Unknown]

NARRATIVE: CASE EVENT DATE: 20170930
